FAERS Safety Report 12663899 (Version 1)
Quarter: 2016Q3

REPORT INFORMATION
  Report Type: Spontaneous
  Country: US (occurrence: None)
  Receive Date: 20160817
  Receipt Date: 20160817
  Transmission Date: 20161109
  Serious: Yes (Hospitalization)
  Sender: FDA-Public Use
  Company Number: None

PATIENT
  Age: 64 Year
  Sex: Male
  Weight: 58.8 kg

DRUGS (5)
  1. 5-FLUOROURACIL (5-FU) [Suspect]
     Active Substance: FLUOROURACIL
     Dates: end: 20160407
  2. LEUCOVORIN CALCIUM. [Suspect]
     Active Substance: LEUCOVORIN CALCIUM
     Dates: end: 20160407
  3. ELOXATIN [Suspect]
     Active Substance: OXALIPLATIN
     Dates: end: 20160407
  4. LISINOPRIL. [Concomitant]
     Active Substance: LISINOPRIL
  5. IBUPROFEN. [Concomitant]
     Active Substance: IBUPROFEN

REACTIONS (6)
  - Nausea [None]
  - Vomiting [None]
  - Blood creatinine increased [None]
  - Dialysis [None]
  - Abdominal pain [None]
  - Hypotension [None]

NARRATIVE: CASE EVENT DATE: 20160707
